FAERS Safety Report 23754808 (Version 1)
Quarter: 2024Q2

REPORT INFORMATION
  Report Type: Spontaneous
  Country: US (occurrence: US)
  Receive Date: 20240418
  Receipt Date: 20240418
  Transmission Date: 20240716
  Serious: Yes (Other)
  Sender: FDA-Public Use
  Company Number: US-JNJFOC-20240434626

PATIENT

DRUGS (1)
  1. REMICADE [Suspect]
     Active Substance: INFLIXIMAB
     Indication: Product used for unknown indication
     Dosage: ON REMICADE IN 1990S
     Route: 041

REACTIONS (3)
  - Lupus-like syndrome [Unknown]
  - Dyspnoea [Unknown]
  - Infusion related reaction [Unknown]
